FAERS Safety Report 16393237 (Version 1)
Quarter: 2019Q2

REPORT INFORMATION
  Report Type: Spontaneous
  Country: HR (occurrence: HR)
  Receive Date: 20190605
  Receipt Date: 20190605
  Transmission Date: 20190711
  Serious: Yes (Other)
  Sender: FDA-Public Use
  Company Number: HR-PFIZER INC-2019240172

PATIENT
  Age: 69 Year
  Sex: Male
  Weight: 95 kg

DRUGS (1)
  1. SORTIS [Suspect]
     Active Substance: ATORVASTATIN
     Dosage: 80 MG, 1X/DAY, IN THE EVENING
     Route: 048
     Dates: start: 2019

REACTIONS (3)
  - Swollen tongue [Recovered/Resolved]
  - Inflammation [Recovered/Resolved]
  - Mouth swelling [Recovered/Resolved]

NARRATIVE: CASE EVENT DATE: 2019
